FAERS Safety Report 5557440-7 (Version None)
Quarter: 2007Q4

REPORT INFORMATION
  Report Type: 
  Country: None (occurrence: None)
  Receive Date: 20071214
  Receipt Date: 20071022
  Transmission Date: 20080405
  Serious: Yes (Other)
  Sender: FDA-Public Use
  Company Number: US-PURDUE-USA_2007_0030205

PATIENT
  Sex: Female

DRUGS (4)
  1. XANAX [Concomitant]
     Indication: DRUG USE FOR UNKNOWN INDICATION
     Dosage: 1 MG, BID
     Route: 048
  2. SOMA [Concomitant]
     Indication: DRUG USE FOR UNKNOWN INDICATION
     Dosage: 750 MG, UNK
     Route: 048
  3. PROZAC [Concomitant]
     Indication: DRUG USE FOR UNKNOWN INDICATION
     Dosage: 20 MG, UNK
     Route: 048
  4. OXYCONTIN [Suspect]
     Indication: PAIN
     Dosage: 20 MG, BID
     Route: 048

REACTIONS (14)
  - AGITATION [None]
  - CHILLS [None]
  - DIARRHOEA [None]
  - DRUG ABUSE [None]
  - DRUG DEPENDENCE [None]
  - HYPERHIDROSIS [None]
  - NERVOUSNESS [None]
  - NIGHTMARE [None]
  - PAIN [None]
  - PALPITATIONS [None]
  - PANIC ATTACK [None]
  - SUICIDAL IDEATION [None]
  - THINKING ABNORMAL [None]
  - VOMITING [None]
